FAERS Safety Report 5910805-3 (Version None)
Quarter: 2008Q4

REPORT INFORMATION
  Report Type: 
  Country: None (occurrence: None)
  Receive Date: 20081007
  Receipt Date: 20080514
  Transmission Date: 20090506
  Serious: No
  Sender: FDA-Public Use
  Company Number: US-ASTRAZENECA-2008UW10039

PATIENT
  Age: 87 Year
  Sex: Female
  Weight: 74.8 kg

DRUGS (8)
  1. ARIMIDEX [Suspect]
     Indication: BREAST CANCER FEMALE
     Route: 048
     Dates: start: 20070101
  2. LIPITOR [Concomitant]
  3. SYNTHROID [Concomitant]
  4. GLIMPERIDE [Concomitant]
  5. METOPROLOL TARTRATE [Concomitant]
     Route: 048
  6. NEXIUM [Concomitant]
     Route: 048
  7. ASPIRIN [Concomitant]
  8. CALTRATE [Concomitant]

REACTIONS (3)
  - ARTHRALGIA [None]
  - MUSCULAR WEAKNESS [None]
  - PAIN IN EXTREMITY [None]
